FAERS Safety Report 14139703 (Version 1)
Quarter: 2017Q4

REPORT INFORMATION
  Report Type: Spontaneous
  Country: US (occurrence: US)
  Receive Date: 20171029
  Receipt Date: 20171029
  Transmission Date: 20180321
  Serious: Yes (Hospitalization)
  Sender: FDA-Public Use
  Company Number: US-BEH-2017084637

PATIENT
  Age: 15 Year
  Sex: Female
  Weight: 22.68 kg

DRUGS (36)
  1. PREDNISONE. [Concomitant]
     Active Substance: PREDNISONE
  2. MULTIVITAMINS [Concomitant]
     Active Substance: VITAMINS
  3. TOBRAMYCIN. [Concomitant]
     Active Substance: TOBRAMYCIN
  4. OXYGEN. [Concomitant]
     Active Substance: OXYGEN
  5. SOLU-CORTEF [Concomitant]
     Active Substance: HYDROCORTISONE SODIUM SUCCINATE
  6. ALPHA LIPOIC ACID [Concomitant]
     Active Substance: .ALPHA.-LIPOIC ACID
  7. UREA 13 C [Concomitant]
  8. EPIPEN JR [Concomitant]
     Active Substance: EPINEPHRINE
  9. HIZENTRA [Suspect]
     Active Substance: HUMAN IMMUNOGLOBULIN G
     Dosage: UNK
     Route: 058
  10. CALCITRIOL. [Concomitant]
     Active Substance: CALCITRIOL
  11. VITAMIN B COMPLEX [Concomitant]
     Active Substance: CYANOCOBALAMIN\DEXPANTHENOL\NIACINAMIDE\PYRIDOXINE HYDROCHLORIDE\RIBOFLAVIN 5^-PHOSPHATE SODIUM\THIAMINE HYDROCHLORIDE\VITAMIN B COMPLEX
  12. FLONASE [Concomitant]
     Active Substance: FLUTICASONE PROPIONATE
  13. ALBUTEROL                          /00139501/ [Concomitant]
     Active Substance: ALBUTEROL
  14. CALMOSEPTINE                       /00156514/ [Concomitant]
  15. ACETAMINOPHEN. [Concomitant]
     Active Substance: ACETAMINOPHEN
  16. LIDOCAINE. [Concomitant]
     Active Substance: LIDOCAINE
  17. HYDROCORTISONE. [Concomitant]
     Active Substance: HYDROCORTISONE
  18. GLUCOPHAGE S [Concomitant]
     Active Substance: METFORMIN HYDROCHLORIDE
  19. ARAVA [Concomitant]
     Active Substance: LEFLUNOMIDE
  20. CO-Q10-CHLORELLA [Concomitant]
  21. HIZENTRA [Suspect]
     Active Substance: HUMAN IMMUNOGLOBULIN G
     Indication: HYPOGAMMAGLOBULINAEMIA
     Dosage: 4 G, UNK
     Route: 058
     Dates: start: 20161227
  22. FOSAMAX [Concomitant]
     Active Substance: ALENDRONATE SODIUM
  23. PULMOZYME [Concomitant]
     Active Substance: DORNASE ALFA
  24. PREDNISONE. [Concomitant]
     Active Substance: PREDNISONE
  25. CALCIUM CARBONATE. [Concomitant]
     Active Substance: CALCIUM CARBONATE
  26. PULMICORT TURBUHALER [Concomitant]
     Active Substance: BUDESONIDE
  27. SALINE                             /00075401/ [Concomitant]
     Active Substance: SODIUM CHLORIDE
  28. PRILOSEC [Concomitant]
     Active Substance: OMEPRAZOLE MAGNESIUM
  29. DIPHENHYDRAMINE. [Concomitant]
     Active Substance: DIPHENHYDRAMINE
  30. CARNITOR [Concomitant]
     Active Substance: LEVOCARNITINE
  31. PROCARDIA [Concomitant]
     Active Substance: NIFEDIPINE
  32. NORDITROPIN [Concomitant]
     Active Substance: SOMATROPIN
  33. IBUPROFEN. [Concomitant]
     Active Substance: IBUPROFEN
  34. ZANTAC [Concomitant]
     Active Substance: RANITIDINE HYDROCHLORIDE
  35. SWEEN PREP [Concomitant]
  36. STELARA [Concomitant]
     Active Substance: USTEKINUMAB

REACTIONS (2)
  - Kidney infection [Recovering/Resolving]
  - Sepsis [Recovering/Resolving]

NARRATIVE: CASE EVENT DATE: 20170909
